FAERS Safety Report 10098183 (Version 1)
Quarter: 2014Q2

REPORT INFORMATION
  Report Type: Spontaneous
  Country: US (occurrence: None)
  Receive Date: 20140422
  Receipt Date: 20140422
  Transmission Date: 20141212
  Serious: Yes (Hospitalization)
  Sender: FDA-Public Use
  Company Number: None

PATIENT
  Age: 77 Year
  Sex: Male
  Weight: 72 kg

DRUGS (1)
  1. PIPERACILLIN/TAZOBACTAM [Suspect]
     Indication: GANGRENE
     Dates: start: 20140417, end: 20140417

REACTIONS (5)
  - Pruritus [None]
  - Wheezing [None]
  - Cough [None]
  - Urticaria [None]
  - Dyspnoea [None]
